FAERS Safety Report 5228381-X (Version None)
Quarter: 2007Q1

REPORT INFORMATION
  Report Type: 
  Country: None (occurrence: None)
  Receive Date: 20070131
  Receipt Date: 20070131
  Transmission Date: 20070707
  Serious: Yes (Life-Threatening)
  Sender: FDA-Public Use
  Company Number: None

PATIENT
  Sex: Male
  Weight: 120.2032 kg

DRUGS (2)
  1. HUMIRA [Suspect]
     Indication: PSORIATIC ARTHROPATHY
     Dosage: 40 MG Q 2 WKS SQ
     Route: 058
     Dates: start: 20060301, end: 20061108
  2. METHOTREXATE [Suspect]
     Indication: PSORIATIC ARTHROPATHY
     Dosage: 22 1/2 MG Q WEEK PO
     Route: 048
     Dates: start: 19950101, end: 20061108

REACTIONS (1)
  - T-CELL LYMPHOMA [None]
